FAERS Safety Report 5010724-3 (Version None)
Quarter: 2006Q2

REPORT INFORMATION
  Report Type: 
  Country: None (occurrence: None)
  Receive Date: 20060523
  Receipt Date: 20060510
  Transmission Date: 20061013
  Serious: Yes (Other)
  Sender: FDA-Public Use
  Company Number: 2006043882

PATIENT
  Age: 38 Year
  Sex: Female
  Weight: 61.6892 kg

DRUGS (1)
  1. BEXTRA [Suspect]
     Indication: ILL-DEFINED DISORDER

REACTIONS (3)
  - ANXIETY [None]
  - PHOTOSENSITIVITY REACTION [None]
  - STEVENS-JOHNSON SYNDROME [None]
